FAERS Safety Report 16844138 (Version 1)
Quarter: 2019Q4

REPORT INFORMATION
  Report Type: Spontaneous
  Country: US (occurrence: US)
  Receive Date: 20190923
  Receipt Date: 20190923
  Transmission Date: 20200122
  Serious: Yes (Other)
  Sender: FDA-Public Use
  Company Number: None

PATIENT
  Age: 38 Year
  Sex: Female

DRUGS (1)
  1. NP THYROID [Suspect]
     Active Substance: LEVOTHYROXINE\LIOTHYRONINE

REACTIONS (4)
  - Product substitution issue [None]
  - Hypothyroidism [None]
  - Feeling abnormal [None]
  - Symptom recurrence [None]

NARRATIVE: CASE EVENT DATE: 20190911
